FAERS Safety Report 7626154-1 (Version None)
Quarter: 2011Q3

REPORT INFORMATION
  Report Type: 
  Country: None (occurrence: None)
  Receive Date: 20110721
  Receipt Date: 20110719
  Transmission Date: 20111222
  Serious: Yes (Other)
  Sender: FDA-Public Use
  Company Number: US-B.I. PHARMACEUTICALS,INC./RIDGEFIELD-2011-BP-18026BP

PATIENT

DRUGS (1)
  1. PRADAXA [Suspect]

REACTIONS (1)
  - SUBDURAL HAEMATOMA [None]
